FAERS Safety Report 24665251 (Version 1)
Quarter: 2024Q4

REPORT INFORMATION
  Report Type: Spontaneous
  Country: SE (occurrence: SE)
  Receive Date: 20241126
  Receipt Date: 20241126
  Transmission Date: 20250115
  Serious: Yes (Other)
  Sender: ACCORD
  Company Number: None

PATIENT
  Age: 66 Year
  Sex: Female
  Weight: 75 kg

DRUGS (6)
  1. CLOPIDOGREL [Suspect]
     Active Substance: CLOPIDOGREL BISULFATE
     Indication: Cerebrovascular accident
     Dosage: 1 TABLET PER DAY,  ACCORD
  2. ACETAMINOPHEN [Concomitant]
     Active Substance: ACETAMINOPHEN
     Dosage: 2 PIECES MAX. 8 TIMES/DAY
     Dates: start: 19900404
  3. HYDROCHLOROTHIAZIDE [Concomitant]
     Active Substance: HYDROCHLOROTHIAZIDE
     Dosage: 1 PIECE/DAY
     Dates: start: 2021
  4. PROPIOMAZINE [Concomitant]
     Active Substance: PROPIOMAZINE
     Dosage: 1-2 TABLETS AT NIGHT
     Dates: start: 2017
  5. TOLTERODINE [Concomitant]
     Active Substance: TOLTERODINE
     Dosage: 1/DAY, SANDOZ
     Dates: start: 2012
  6. HIPREX [Concomitant]
     Active Substance: METHENAMINE HIPPURATE
     Dosage: 1-2 /DAY
     Dates: start: 20240501

REACTIONS (2)
  - Breast haemorrhage [Not Recovered/Not Resolved]
  - Breast discharge [Not Recovered/Not Resolved]

NARRATIVE: CASE EVENT DATE: 20200101
